FAERS Safety Report 8990914 (Version 1)
Quarter: 2012Q4

REPORT INFORMATION
  Report Type: Spontaneous
  Country: US (occurrence: None)
  Receive Date: 20121227
  Receipt Date: 20121227
  Transmission Date: 20130627
  Serious: Yes (Life-Threatening)
  Sender: FDA-Public Use
  Company Number: None

PATIENT
  Age: 46 Year
  Sex: Female
  Weight: 117.3 kg

DRUGS (2)
  1. VICTRELIS [Suspect]
     Indication: CHRONIC HEPATITIS C
     Dosage: Victrelis  TID  PO
     Route: 048
     Dates: start: 20121024
  2. PEGASYS [Suspect]
     Dosage: Pegasys  q week  subq
     Route: 058
     Dates: start: 20120927

REACTIONS (11)
  - Skin burning sensation [None]
  - Skin ulcer [None]
  - Mouth ulceration [None]
  - Anal ulcer [None]
  - Dyspnoea [None]
  - Productive cough [None]
  - Oedema peripheral [None]
  - Joint swelling [None]
  - Joint swelling [None]
  - Diarrhoea [None]
  - Renal failure [None]
